FAERS Safety Report 9749986 (Version 6)
Quarter: 2014Q3

REPORT INFORMATION
  Report Type: Report from Study
  Country: AR (occurrence: AR)
  Receive Date: 20131212
  Receipt Date: 20140711
  Transmission Date: 20150326
  Serious: Yes (Hospitalization, Other)
  Sender: FDA-Public Use
  Company Number: AR-ABBVIE-13P-007-1129794-00

PATIENT
  Age: 61 Year
  Sex: Male

DRUGS (2)
  1. HUMIRA [Suspect]
     Active Substance: ADALIMUMAB
     Indication: RHEUMATOID ARTHRITIS
     Route: 058
     Dates: start: 20130101, end: 201311
  2. HUMIRA [Suspect]
     Active Substance: ADALIMUMAB
     Indication: PSORIATIC ARTHROPATHY
     Route: 058

REACTIONS (8)
  - Immunosuppression [Unknown]
  - Pain [Not Recovered/Not Resolved]
  - Procedural pain [Recovering/Resolving]
  - Gait disturbance [Not Recovered/Not Resolved]
  - Localised infection [Recovering/Resolving]
  - Foot fracture [Not Recovered/Not Resolved]
  - Patient-device incompatibility [Unknown]
  - Impaired healing [Unknown]

NARRATIVE: CASE EVENT DATE: 201307
